FAERS Safety Report 9184488 (Version 1)
Quarter: 2012Q4

REPORT INFORMATION
  Report Type: 
  Country: US (occurrence: US)
  Receive Date: 20121031
  Receipt Date: 20121031
  Transmission Date: 20130627
  Serious: Yes (Death)
  Sender: FDA-Public Use
  Company Number: US-ROXANE LABORATORIES, INC.-2012-RO-02257RO

PATIENT
  Age: 45 Year

DRUGS (1)
  1. PROPRANOLOL [Suspect]
     Route: 048

REACTIONS (1)
  - Completed suicide [Fatal]
